FAERS Safety Report 9416434 (Version 1)
Quarter: 2013Q3

REPORT INFORMATION
  Report Type: Spontaneous
  Country: US (occurrence: US)
  Receive Date: 20130724
  Receipt Date: 20130724
  Transmission Date: 20140515
  Serious: Yes (Other)
  Sender: FDA-Public Use
  Company Number: US-ROXANE LABORATORIES, INC.-2013-RO-01193RO

PATIENT
  Sex: Female

DRUGS (1)
  1. MONTELUKAST SODIUM [Suspect]
     Dates: start: 201212

REACTIONS (5)
  - Respiratory distress [Unknown]
  - Vomiting [Unknown]
  - Tachycardia [Unknown]
  - Insomnia [Unknown]
  - Sleep disorder [Unknown]
